FAERS Safety Report 5511206-2 (Version None)
Quarter: 2007Q4

REPORT INFORMATION
  Report Type: 
  Country: None (occurrence: None)
  Receive Date: 20071109
  Receipt Date: 20071107
  Transmission Date: 20080405
  Serious: No
  Sender: FDA-Public Use
  Company Number: US-ALLERGAN-0704976US

PATIENT
  Sex: Female

DRUGS (1)
  1. TAZORAC [Suspect]
     Indication: ACNE
     Dosage: UNK, UNKNOWN
     Route: 061

REACTIONS (1)
  - PREGNANCY [None]
